FAERS Safety Report 20810826 (Version 1)
Quarter: 2022Q2

REPORT INFORMATION
  Report Type: Spontaneous
  Country: US (occurrence: US)
  Receive Date: 20220510
  Receipt Date: 20220510
  Transmission Date: 20220721
  Serious: No
  Sender: FDA-Public Use
  Company Number: US-PFIZER INC-202101227686

PATIENT
  Age: 73 Year
  Sex: Male

DRUGS (1)
  1. LATANOPROST [Suspect]
     Active Substance: LATANOPROST
     Indication: Glaucoma
     Dosage: 1 DROP IN THE EVENING IN EACH EYE
     Route: 047
     Dates: start: 2019

REACTIONS (3)
  - Poor quality product administered [Unknown]
  - Product packaging quantity issue [Unknown]
  - Eye pain [Unknown]
